FAERS Safety Report 6579389-3 (Version None)
Quarter: 2010Q1

REPORT INFORMATION
  Report Type: 
  Country: None (occurrence: None)
  Receive Date: 20100209
  Receipt Date: 20100209
  Transmission Date: 20100710
  Serious: Yes (Other)
  Sender: FDA-Public Use
  Company Number: None

PATIENT
  Age: 16 Year

DRUGS (3)
  1. EQUASYM RETARD(METHYLPHENIDATE HYDROCHLORIDE) CAPSULE [Suspect]
     Indication: DRUG USE FOR UNKNOWN INDICATION
     Dosage: 1800 MG, ONE DOSE, ORAL
     Route: 048
     Dates: start: 20100121, end: 20100121
  2. CARVEDILOL [Suspect]
     Indication: DRUG USE FOR UNKNOWN INDICATION
     Dosage: 112.5 MG, ONE DOSE, ORAL
     Route: 048
     Dates: start: 20100121, end: 20100121
  3. RISPERIDONE [Suspect]
     Indication: DRUG USE FOR UNKNOWN INDICATION
     Dosage: 2 MG, ONE DOSE, ORAL
     Route: 048
     Dates: start: 20100121, end: 20100121

REACTIONS (3)
  - HYPOTHERMIA [None]
  - PALLOR [None]
  - SUICIDE ATTEMPT [None]
